FAERS Safety Report 8888714 (Version 2)
Quarter: 2012Q4

REPORT INFORMATION
  Report Type: 
  Country: JP (occurrence: JP)
  Receive Date: 20121106
  Receipt Date: 20121120
  Transmission Date: 20130627
  Serious: Yes (Life-Threatening)
  Sender: FDA-Public Use
  Company Number: JP-GLAXOSMITHKLINE-B0841058A

PATIENT
  Age: 63 Year
  Sex: Female

DRUGS (8)
  1. LAMICTAL [Suspect]
     Indication: BIPOLAR DISORDER
     Dosage: 50MG Per day
     Route: 048
     Dates: start: 20120918, end: 20121004
  2. LAMICTAL [Suspect]
     Indication: BIPOLAR DISORDER
     Dosage: 75MG Per day
     Route: 048
     Dates: start: 20121005, end: 20121014
  3. SODIUM VALPROATE [Suspect]
     Indication: MOOD ALTERED
     Dosage: 600MG Twice per day
     Route: 048
     Dates: end: 20121014
  4. LIMAS [Concomitant]
     Route: 048
  5. CYMBALTA [Concomitant]
     Route: 048
  6. HALRACK [Concomitant]
     Dosage: .25MG Per day
     Route: 048
  7. EURODIN [Concomitant]
     Dosage: 2MG Per day
     Route: 048
  8. REMERON [Concomitant]
     Route: 048

REACTIONS (11)
  - Stevens-Johnson syndrome [Recovered/Resolved]
  - Drug eruption [Recovered/Resolved]
  - Ocular hyperaemia [Unknown]
  - Erythema of eyelid [Unknown]
  - Eye discharge [Unknown]
  - Eyelid erosion [Unknown]
  - Lip erosion [Unknown]
  - Oral mucosa erosion [Unknown]
  - Rash macular [Unknown]
  - Generalised erythema [Unknown]
  - Rash [Unknown]
